FAERS Safety Report 5828287-9 (Version None)
Quarter: 2008Q3

REPORT INFORMATION
  Report Type: 
  Country: None (occurrence: None)
  Receive Date: 20080731
  Receipt Date: 20080730
  Transmission Date: 20090109
  Serious: Yes (Other)
  Sender: FDA-Public Use
  Company Number: US-BAYER-200824340NA

PATIENT
  Sex: Female

DRUGS (1)
  1. MIRENA [Suspect]
     Indication: DRUG USE FOR UNKNOWN INDICATION
     Route: 015
     Dates: start: 20080411, end: 20080418

REACTIONS (4)
  - DISCOMFORT [None]
  - ENDOMETRITIS [None]
  - IUCD COMPLICATION [None]
  - VAGINAL HAEMORRHAGE [None]
